FAERS Safety Report 19686372 (Version 6)
Quarter: 2022Q1

REPORT INFORMATION
  Report Type: Other
  Country: CN (occurrence: None)
  Receive Date: 20210811
  Receipt Date: 20220211
  Transmission Date: 20220423
  Serious: Yes (Hospitalization)
  Sender: FDA-Public Use
  Company Number: CN-ROCHE-2888572

PATIENT
  Age: 59 Year
  Sex: Female
  Weight: 47 kg

DRUGS (8)
  1. CAPECITABINE [Suspect]
     Active Substance: CAPECITABINE
     Indication: Breast cancer
     Route: 048
     Dates: start: 20201126, end: 20210308
  2. CAPECITABINE [Suspect]
     Active Substance: CAPECITABINE
     Dosage: 2,000MG/D FOR ODD DAYS AND 2,500 MG/D FOR EVEN DAYS
     Route: 048
     Dates: start: 20210309, end: 20210531
  3. CAPECITABINE [Suspect]
     Active Substance: CAPECITABINE
     Dosage: 1,500MG/D, 1,000 MG IN THE MORNING AND 500 MG IN THE EVENING;
     Route: 048
     Dates: start: 20210601, end: 20210718
  4. LAPATINIB [Suspect]
     Active Substance: LAPATINIB
     Indication: Breast cancer
     Route: 048
     Dates: start: 20201126, end: 20210308
  5. LAPATINIB [Suspect]
     Active Substance: LAPATINIB
     Route: 048
     Dates: start: 20210309
  6. RABEPRAZOLE [Concomitant]
     Active Substance: RABEPRAZOLE
  7. CEFACLOR [Concomitant]
     Active Substance: CEFACLOR
  8. CLINDAMYCIN [Concomitant]
     Active Substance: CLINDAMYCIN

REACTIONS (3)
  - Laryngeal mass [Recovered/Resolved]
  - Laryngeal neoplasm [Recovered/Resolved]
  - Vocal cord polyp [Recovered/Resolved]

NARRATIVE: CASE EVENT DATE: 20210715
